FAERS Safety Report 10383445 (Version 6)
Quarter: 2014Q4

REPORT INFORMATION
  Report Type: Spontaneous
  Country: US (occurrence: US)
  Receive Date: 20140814
  Receipt Date: 20141006
  Transmission Date: 20150528
  Serious: Yes (Hospitalization, Other)
  Sender: FDA-Public Use
  Company Number: US-UNITED THERAPEUTICS-UNT-2014-005482

PATIENT
  Age: 63 Year
  Sex: Female
  Weight: 98.41 kg

DRUGS (4)
  1. REVATIO [Concomitant]
     Active Substance: SILDENAFIL CITRATE
     Indication: PRODUCT USED FOR UNKNOWN INDICATION
  2. WARFARIN [Concomitant]
     Active Substance: WARFARIN
     Indication: PRODUCT USED FOR UNKNOWN INDICATION
  3. REMODULIN [Suspect]
     Active Substance: TREPROSTINIL
     Dosage: 0.117 ?G/KG, CONTINUING
     Route: 058
     Dates: start: 20110916
  4. REMODULIN [Suspect]
     Active Substance: TREPROSTINIL
     Indication: PULMONARY ARTERIAL HYPERTENSION
     Dosage: 0.115 ?G/KG, CONTINUING
     Route: 058
     Dates: start: 20080306

REACTIONS (6)
  - Device related infection [Unknown]
  - Injection site discharge [Unknown]
  - Pneumonia [Not Recovered/Not Resolved]
  - Infusion site infection [Unknown]
  - Sepsis [Not Recovered/Not Resolved]
  - Loss of consciousness [Unknown]

NARRATIVE: CASE EVENT DATE: 2014
